FAERS Safety Report 6854923-4 (Version None)
Quarter: 2010Q3

REPORT INFORMATION
  Report Type: 
  Country: None (occurrence: None)
  Receive Date: 20100717
  Receipt Date: 20080312
  Transmission Date: 20110219
  Serious: Yes (Other)
  Sender: FDA-Public Use
  Company Number: US-PFIZER INC-2007101302

PATIENT
  Age: 53 Year
  Sex: Female
  Weight: 98.4 kg

DRUGS (5)
  1. CHANTIX [Suspect]
     Indication: SMOKING CESSATION THERAPY
     Route: 048
     Dates: start: 20071014, end: 20071104
  2. CHANTIX [Suspect]
     Indication: EX-TOBACCO USER
  3. DETROL LA [Concomitant]
     Indication: URINARY INCONTINENCE
  4. LIPITOR [Concomitant]
     Indication: HYPERLIPIDAEMIA
  5. ZIAC [Concomitant]
     Indication: HYPERTENSION

REACTIONS (13)
  - ANGER [None]
  - CARPAL TUNNEL SYNDROME [None]
  - CHEST PAIN [None]
  - COORDINATION ABNORMAL [None]
  - CORONARY ARTERY DISEASE [None]
  - DISORIENTATION [None]
  - DYSPNOEA [None]
  - GASTRITIS [None]
  - HEART RATE DECREASED [None]
  - JOINT INJURY [None]
  - MOOD ALTERED [None]
  - NERVOUSNESS [None]
  - SUICIDAL IDEATION [None]
